FAERS Safety Report 16798109 (Version 1)
Quarter: 2019Q3

REPORT INFORMATION
  Report Type: Spontaneous
  Country: US (occurrence: US)
  Receive Date: 20190912
  Receipt Date: 20190912
  Transmission Date: 20191005
  Serious: No
  Sender: FDA-Public Use
  Company Number: US-BAYER-2019-156732

PATIENT
  Age: 42 Year
  Sex: Male
  Weight: 88 kg

DRUGS (1)
  1. MIRALAX [Suspect]
     Active Substance: POLYETHYLENE GLYCOL 3350
     Dosage: UNK
     Route: 048
     Dates: start: 2019, end: 20190823

REACTIONS (3)
  - Throat irritation [Not Recovered/Not Resolved]
  - Suspected product contamination [None]
  - Oropharyngeal pain [Unknown]

NARRATIVE: CASE EVENT DATE: 20190823
